FAERS Safety Report 13613512 (Version 1)
Quarter: 2017Q2

REPORT INFORMATION
  Report Type: Spontaneous
  Country: BR (occurrence: BR)
  Receive Date: 20170605
  Receipt Date: 20170605
  Transmission Date: 20170830
  Serious: Yes (Other)
  Sender: FDA-Public Use
  Company Number: BR-BIOMARINAP-BR-2017-114220

PATIENT
  Age: 7 Year
  Sex: Male
  Weight: 27 kg

DRUGS (1)
  1. ALDURAZYME [Suspect]
     Active Substance: LARONIDASE
     Indication: MUCOPOLYSACCHARIDOSIS I
     Dosage: UNK, QOW
     Route: 041
     Dates: start: 20150101

REACTIONS (5)
  - Off label use [Unknown]
  - Mitral valve thickening [Unknown]
  - Left ventricular hypertrophy [Unknown]
  - Electrocardiogram abnormal [Unknown]
  - Abscess [Unknown]

NARRATIVE: CASE EVENT DATE: 201702
